FAERS Safety Report 8481271-1 (Version None)
Quarter: 2012Q2

REPORT INFORMATION
  Report Type: 
  Country: None (occurrence: None)
  Receive Date: 20120626
  Receipt Date: 20120626
  Transmission Date: 20120825
  Serious: No
  Sender: FDA-Public Use
  Company Number: None

PATIENT
  Age: 59 Year
  Sex: Male
  Weight: 104.1 kg

DRUGS (1)
  1. FIDAXOMICIN [Suspect]
     Indication: INFECTION
     Dosage: 200 MG BID PO
     Route: 048
     Dates: start: 20120201, end: 20120202

REACTIONS (7)
  - SIALOADENITIS [None]
  - PAROTID GLAND ENLARGEMENT [None]
  - FAECAL VOLUME DECREASED [None]
  - HYPOPHAGIA [None]
  - PAROTITIS [None]
  - FACE OEDEMA [None]
  - TENDERNESS [None]
